FAERS Safety Report 10282878 (Version 10)
Quarter: 2018Q2

REPORT INFORMATION
  Report Type: Spontaneous
  Country: US (occurrence: US)
  Receive Date: 20140708
  Receipt Date: 20180518
  Transmission Date: 20180711
  Serious: Yes (Other)
  Sender: FDA-Public Use
  Company Number: US-ABBVIE-14P-163-1254070-00

PATIENT
  Sex: Female

DRUGS (2)
  1. CREON [Suspect]
     Active Substance: PANCRELIPASE AMYLASE\PANCRELIPASE LIPASE\PANCRELIPASE PROTEASE
     Indication: PRODUCT USED FOR UNKNOWN INDICATION
     Dosage: ONE TO TWO CAPSULES
     Route: 048
  2. INSULIN [Concomitant]
     Active Substance: INSULIN NOS
     Indication: PRODUCT USED FOR UNKNOWN INDICATION

REACTIONS (24)
  - Fluid retention [Unknown]
  - Cancer surgery [Unknown]
  - Splenectomy [Unknown]
  - Abdominal distension [Unknown]
  - Malaise [Unknown]
  - General physical health deterioration [Unknown]
  - Food intolerance [Unknown]
  - Pancreatic enzymes abnormal [Unknown]
  - Blood glucose abnormal [Unknown]
  - Hepatectomy [Unknown]
  - Pain [Unknown]
  - Hypophagia [Unknown]
  - Diabetes mellitus [Unknown]
  - Liver disorder [Unknown]
  - Neoplasm malignant [Unknown]
  - Multiple organ dysfunction syndrome [Unknown]
  - Drug ineffective [Unknown]
  - Constipation [Unknown]
  - Impaired work ability [Unknown]
  - Intestinal resection [Unknown]
  - Dyspepsia [Unknown]
  - Pancreatic neoplasm [Unknown]
  - Immunodeficiency [Not Recovered/Not Resolved]
  - Post procedural complication [Unknown]

NARRATIVE: CASE EVENT DATE: 2013
